FAERS Safety Report 14672333 (Version 2)
Quarter: 2018Q2

REPORT INFORMATION
  Report Type: Other
  Country: CA (occurrence: CA)
  Receive Date: 20180323
  Receipt Date: 20180422
  Transmission Date: 20180711
  Serious: Yes (Other)
  Sender: FDA-Public Use
  Company Number: CA-APOTEX-2018AP008173

PATIENT
  Age: 59 Year
  Sex: Female

DRUGS (1)
  1. SALBUTAMOL [Suspect]
     Active Substance: ALBUTEROL
     Indication: PRODUCT USED FOR UNKNOWN INDICATION
     Dosage: UNK
     Route: 065

REACTIONS (11)
  - Musculoskeletal disorder [Recovered/Resolved with Sequelae]
  - Hiatus hernia [Recovered/Resolved with Sequelae]
  - Chronic spontaneous urticaria [Recovered/Resolved with Sequelae]
  - Anal pruritus [Recovered/Resolved with Sequelae]
  - Glaucoma [Recovered/Resolved with Sequelae]
  - Panic attack [Recovered/Resolved with Sequelae]
  - Vulvovaginal pruritus [Recovered/Resolved with Sequelae]
  - Back injury [Recovered/Resolved with Sequelae]
  - Cataract [Recovered/Resolved with Sequelae]
  - Post-traumatic stress disorder [Recovered/Resolved with Sequelae]
  - Asthma [Recovered/Resolved with Sequelae]
